FAERS Safety Report 6258544-6 (Version None)
Quarter: 2009Q3

REPORT INFORMATION
  Report Type: 
  Country: None (occurrence: None)
  Receive Date: 20090707
  Receipt Date: 20090701
  Transmission Date: 20100115
  Serious: Yes (Other)
  Sender: FDA-Public Use
  Company Number: US-AMGEN-QUU354029

PATIENT
  Sex: Male

DRUGS (6)
  1. ARANESP [Suspect]
     Indication: MYELODYSPLASTIC SYNDROME
     Dates: start: 20090320
  2. VITAMIN D [Concomitant]
  3. SYNTHROID [Concomitant]
  4. FOLATE SODIUM [Concomitant]
  5. VITAMIN B-COMPLEX FORTE [Concomitant]
  6. KELP [Concomitant]

REACTIONS (4)
  - DIARRHOEA [None]
  - DRUG INEFFECTIVE [None]
  - HAEMORRHOIDS [None]
  - MYELODYSPLASTIC SYNDROME [None]
